FAERS Safety Report 24622614 (Version 3)
Quarter: 2024Q4

REPORT INFORMATION
  Report Type: Spontaneous
  Country: CA (occurrence: CA)
  Receive Date: 20241115
  Receipt Date: 20241225
  Transmission Date: 20250114
  Serious: Yes (Hospitalization, Other)
  Sender: CSL BEHRING
  Company Number: CA-BEH-2024184728

PATIENT
  Age: 80 Year
  Sex: Male
  Weight: 71 kg

DRUGS (11)
  1. ALBUREX [Suspect]
     Active Substance: ALBUMIN HUMAN
     Indication: Hepatic cirrhosis
     Dosage: 100 ML
     Route: 042
     Dates: start: 20241024, end: 20241024
  2. ALBUREX [Suspect]
     Active Substance: ALBUMIN HUMAN
     Indication: Fluid replacement
     Dosage: UNK
     Route: 065
  3. ALBUREX [Suspect]
     Active Substance: ALBUMIN HUMAN
     Indication: Hypoproteinaemia
  4. CARVEDILOL [Concomitant]
     Active Substance: CARVEDILOL
  5. SERTRALINE [Concomitant]
     Active Substance: SERTRALINE HYDROCHLORIDE
  6. URSODIOL [Concomitant]
     Active Substance: URSODIOL
  7. MIRABEGRON [Concomitant]
     Active Substance: MIRABEGRON
  8. ROSUVASTATIN [Concomitant]
     Active Substance: ROSUVASTATIN
  9. LEVOTHYROXINE [Concomitant]
     Active Substance: LEVOTHYROXINE
  10. METFORMIN [Concomitant]
     Active Substance: METFORMIN HYDROCHLORIDE
  11. FERRIC POLYSACCHARIDE COMPLEX [Concomitant]
     Active Substance: FERRIC POLYSACCHARIDE COMPLEX

REACTIONS (9)
  - Diarrhoea [Recovered/Resolved]
  - Hypotension [Recovered/Resolved]
  - Dyspnoea [Recovered/Resolved]
  - Fatigue [Recovered/Resolved]
  - Pruritus [Recovered/Resolved]
  - Asthenia [Recovered/Resolved]
  - Cough [Recovered/Resolved]
  - Asthenia [Unknown]
  - Anaphylactic reaction [Unknown]

NARRATIVE: CASE EVENT DATE: 20241024
